FAERS Safety Report 14598877 (Version 1)
Quarter: 2018Q1

REPORT INFORMATION
  Report Type: Spontaneous
  Country: US (occurrence: US)
  Receive Date: 20180302
  Receipt Date: 20180302
  Transmission Date: 20180509
  Serious: Yes (Disabling)
  Sender: FDA-Public Use
  Company Number: None

PATIENT
  Age: 70 Year
  Sex: Male
  Weight: 74.25 kg

DRUGS (3)
  1. SYNTHROID [Concomitant]
     Active Substance: LEVOTHYROXINE SODIUM
  2. DIAZEPAM. [Suspect]
     Active Substance: DIAZEPAM
     Indication: ANXIETY
     Dosage: ?          QUANTITY:14 TABLET(S);?
     Route: 048
     Dates: start: 20150101, end: 20160125
  3. MIRAPEX [Concomitant]
     Active Substance: PRAMIPEXOLE DIHYDROCHLORIDE

REACTIONS (29)
  - Mood swings [None]
  - Insomnia [None]
  - Withdrawal syndrome [None]
  - Headache [None]
  - Memory impairment [None]
  - Dysphagia [None]
  - Weight decreased [None]
  - Loss of personal independence in daily activities [None]
  - Paraesthesia [None]
  - Confusional state [None]
  - Tinnitus [None]
  - Ear discomfort [None]
  - Nausea [None]
  - Asthenia [None]
  - Panic attack [None]
  - Suicidal ideation [None]
  - Social avoidant behaviour [None]
  - Depersonalisation/derealisation disorder [None]
  - Speech disorder [None]
  - Vision blurred [None]
  - Myalgia [None]
  - Anxiety [None]
  - Cognitive disorder [None]
  - Hypoaesthesia [None]
  - Irritability [None]
  - Aggression [None]
  - Derealisation [None]
  - Irritable bowel syndrome [None]
  - Fine motor skill dysfunction [None]

NARRATIVE: CASE EVENT DATE: 20150302
